FAERS Safety Report 7368997-8 (Version None)
Quarter: 2011Q1

REPORT INFORMATION
  Report Type: 
  Country: None (occurrence: None)
  Receive Date: 20110323
  Receipt Date: 20110311
  Transmission Date: 20110831
  Serious: Yes (Hospitalization)
  Sender: FDA-Public Use
  Company Number: BR-BAYER-2011-022124

PATIENT
  Sex: Female
  Weight: 67 kg

DRUGS (2)
  1. MIRENA [Suspect]
     Indication: CONTRACEPTION
     Dosage: 20 MCG/24HR, CONT
     Route: 015
     Dates: start: 20061204
  2. PANTOPRAZOLE [Concomitant]
     Indication: ILL-DEFINED DISORDER
     Dosage: 1 DF, QD
     Route: 048
     Dates: start: 20110307

REACTIONS (4)
  - HAEMORRHAGIC CYST [None]
  - ADNEXA UTERI PAIN [None]
  - OVARIAN ENLARGEMENT [None]
  - OVARIAN CYST [None]
